FAERS Safety Report 16232418 (Version 1)
Quarter: 2019Q2

REPORT INFORMATION
  Report Type: Spontaneous
  Country: JP (occurrence: JP)
  Receive Date: 20190424
  Receipt Date: 20190424
  Transmission Date: 20190711
  Serious: Yes (Other)
  Sender: FDA-Public Use
  Company Number: JP-TEVA-2019-JP-002363J

PATIENT
  Age: 6 Decade
  Sex: Female

DRUGS (3)
  1. FENOFIBRATE TABLET 80 MG TAKEDA TEVA [Suspect]
     Active Substance: FENOFIBRATE
     Indication: PRODUCT USED FOR UNKNOWN INDICATION
     Route: 048
     Dates: start: 20190412, end: 20190419
  2. EDIROL [Concomitant]
     Active Substance: ELDECALCITOL
     Route: 048
  3. BENET [Concomitant]
     Active Substance: RISEDRONATE SODIUM
     Route: 048

REACTIONS (2)
  - Muscle fatigue [Unknown]
  - Rhabdomyolysis [Unknown]

NARRATIVE: CASE EVENT DATE: 20190419
